FAERS Safety Report 14735333 (Version 1)
Quarter: 2018Q2

REPORT INFORMATION
  Report Type: Spontaneous
  Country: US (occurrence: US)
  Receive Date: 20180403
  Receipt Date: 20180403
  Transmission Date: 20180711
  Serious: Yes (Other)
  Sender: FDA-Public Use
  Company Number: None

PATIENT
  Age: 67 Year
  Sex: Female
  Weight: 94.8 kg

DRUGS (12)
  1. HUMALOG KWIKPEN [Suspect]
     Active Substance: INSULIN LISPRO
     Indication: TYPE 2 DIABETES MELLITUS
     Dosage: ?          OTHER STRENGTH:100 UNITS PER ML;QUANTITY:10 DF DOSAGE FORM;OTHER FREQUENCY:3X BEFORE EVERY ME;?
     Dates: start: 2014
  2. LOSARTAN POTASSIUM. [Concomitant]
     Active Substance: LOSARTAN POTASSIUM
  3. GABAPENTIN. [Concomitant]
     Active Substance: GABAPENTIN
  4. CALCITRIOL. [Concomitant]
     Active Substance: CALCITRIOL
  5. TUMS ULTRA [Concomitant]
     Active Substance: CALCIUM CARBONATE
  6. LEVOTHYROXINE. [Concomitant]
     Active Substance: LEVOTHYROXINE
  7. LEVEMIR [Concomitant]
     Active Substance: INSULIN DETEMIR
  8. OMEPRAZOLE. [Concomitant]
     Active Substance: OMEPRAZOLE
  9. PRAVASTATIN. [Concomitant]
     Active Substance: PRAVASTATIN
  10. BABY ASPIRIN [Concomitant]
     Active Substance: ASPIRIN
  11. HYDROCHLOROTHIAZEIDE [Concomitant]
  12. QVAR INHALER [Concomitant]

REACTIONS (3)
  - Blood glucose increased [None]
  - Glycosylated haemoglobin increased [None]
  - Device malfunction [None]
